FAERS Safety Report 6375600-2 (Version None)
Quarter: 2009Q3

REPORT INFORMATION
  Report Type: 
  Country: None (occurrence: None)
  Receive Date: 20090924
  Receipt Date: 20090923
  Transmission Date: 20100115
  Serious: Yes (Life-Threatening)
  Sender: FDA-Public Use
  Company Number: DE-B.I. PHARMACEUTICALS,INC./RIDGEFIELD-2009-DE-05397DE

PATIENT
  Sex: Female
  Weight: 70 kg

DRUGS (8)
  1. AGGRENOX [Suspect]
     Indication: CEREBROVASCULAR ACCIDENT
     Dosage: 2 ANZ
     Route: 048
  2. RAMIPRIL [Concomitant]
     Dosage: 5 MG
  3. SIMVASTATIN [Concomitant]
     Dosage: 20 MG
  4. TORSEMIDE [Concomitant]
     Dosage: 20 MG
  5. PK-LEVO [Concomitant]
     Dosage: 100 MG LEVODOPA/25 MG BENSERAZIDE, 2/DAY
  6. CARMEN [Concomitant]
     Dosage: 20 MG
  7. CARBAMAZEPINE [Concomitant]
     Dosage: 600 MG
  8. MARCUMAR [Concomitant]
     Dates: start: 20090813

REACTIONS (1)
  - THROMBOCYTOPENIA [None]
